FAERS Safety Report 5319135-4 (Version None)
Quarter: 2007Q1

REPORT INFORMATION
  Report Type: 
  Country: None (occurrence: None)
  Receive Date: 20070208
  Receipt Date: 20040514
  Transmission Date: 20070707
  Serious: Yes (Other)
  Sender: FDA-Public Use
  Company Number: 470615

PATIENT

DRUGS (5)
  1. KETOROLAC (KETOROLAC) [Suspect]
     Indication: DRUG USE FOR UNKNOWN INDICATION
  2. CISPLATIN [Concomitant]
  3. FOLINIC ACID [Concomitant]
  4. ETOPOSIDE [Concomitant]
  5. FLUOROURACIL [Concomitant]

REACTIONS (1)
  - GASTRIC PERFORATION [None]
